FAERS Safety Report 11839116 (Version 1)
Quarter: 2015Q4

REPORT INFORMATION
  Report Type: Report from Study
  Country: CO (occurrence: CO)
  Receive Date: 20151216
  Receipt Date: 20151216
  Transmission Date: 20160305
  Serious: Yes (Death, Other)
  Sender: FDA-Public Use
  Company Number: CO-AMGEN-COLSL2015101287

PATIENT
  Age: 57 Year
  Sex: Female

DRUGS (1)
  1. VECTIBIX [Suspect]
     Active Substance: PANITUMUMAB
     Indication: COLORECTAL CANCER METASTATIC
     Dosage: UNK, EVERY 15 DAYS
     Route: 042
     Dates: start: 20140916

REACTIONS (4)
  - Death [Fatal]
  - Treatment failure [Not Recovered/Not Resolved]
  - Disease progression [Unknown]
  - Pain [Unknown]

NARRATIVE: CASE EVENT DATE: 20150825
